FAERS Safety Report 8343587 (Version 3)
Quarter: 2014Q1

REPORT INFORMATION
  Report Type: Report from Study
  Country: AR (occurrence: AR)
  Receive Date: 20120119
  Receipt Date: 20140303
  Transmission Date: 20141002
  Serious: Yes (Other)
  Sender: FDA-Public Use
  Company Number: AR-ROCHE-1019143

PATIENT
  Sex: Female

DRUGS (2)
  1. RANIBIZUMAB [Suspect]
     Indication: MACULOPATHY
     Dosage: DOSE:4 AMPULES IN 1 EYE AND 6 IN OTHER EYE?DOSE; 7 AMPOULES IN LEFT EYE AND 5 IN THE RIGHT
     Route: 050
  2. RANIBIZUMAB [Suspect]
     Route: 050
     Dates: start: 20110801

REACTIONS (3)
  - Dementia Alzheimer^s type [Not Recovered/Not Resolved]
  - Visual impairment [Not Recovered/Not Resolved]
  - Condition aggravated [Unknown]
